FAERS Safety Report 5521715-8 (Version None)
Quarter: 2007Q4

REPORT INFORMATION
  Report Type: 
  Country: None (occurrence: None)
  Receive Date: 20071120
  Receipt Date: 20071115
  Transmission Date: 20080405
  Serious: Yes (Death, Hospitalization, Other)
  Sender: FDA-Public Use
  Company Number: PHRM2007FR02561

PATIENT
  Age: 60 Year
  Sex: Male

DRUGS (5)
  1. NEORAL [Suspect]
     Indication: HEART TRANSPLANT
     Route: 042
     Dates: start: 20071105, end: 20071106
  2. NEORAL [Suspect]
     Dosage: UNK, UNK
     Route: 048
  3. CELLCEPT [Concomitant]
     Indication: HEART TRANSPLANT
  4. CORTICOSTEROID NOS [Concomitant]
     Indication: HEART TRANSPLANT
  5. BACTRIM [Concomitant]
     Indication: PNEUMOCYSTIS JIROVECI PNEUMONIA

REACTIONS (16)
  - ALANINE AMINOTRANSFERASE INCREASED [None]
  - ANURIA [None]
  - ASPARTATE AMINOTRANSFERASE INCREASED [None]
  - BLOOD POTASSIUM INCREASED [None]
  - CYTOLYTIC HEPATITIS [None]
  - DEEP VEIN THROMBOSIS [None]
  - HAEMOGLOBIN DECREASED [None]
  - INCORRECT ROUTE OF DRUG ADMINISTRATION [None]
  - MULTI-ORGAN FAILURE [None]
  - PERIPHERAL ISCHAEMIA [None]
  - PLATELET COUNT DECREASED [None]
  - PNEUMOCYSTIS JIROVECI PNEUMONIA [None]
  - PROTHROMBIN TIME RATIO INCREASED [None]
  - RENAL FAILURE ACUTE [None]
  - RESPIRATORY DISTRESS [None]
  - SEPSIS [None]
